FAERS Safety Report 8589877-6 (Version None)
Quarter: 2012Q3

REPORT INFORMATION
  Report Type: 
  Country: None (occurrence: None)
  Receive Date: 20120813
  Receipt Date: 20120802
  Transmission Date: 20120928
  Serious: No
  Sender: FDA-Public Use
  Company Number: US-ASTRAZENECA-2012SE55123

PATIENT
  Age: 61 Year
  Sex: Male

DRUGS (5)
  1. LISINOPRIL [Concomitant]
  2. TOPROL-XL [Suspect]
     Route: 048
  3. IMDUR [Concomitant]
  4. METOPROLOL TARTRATE [Concomitant]
  5. HYDROCHLOROTHIAZIDE [Concomitant]

REACTIONS (2)
  - ADVERSE EVENT [None]
  - HEART RATE DECREASED [None]
